FAERS Safety Report 8077425-9 (Version None)
Quarter: 2012Q1

REPORT INFORMATION
  Report Type: 
  Country: None (occurrence: None)
  Receive Date: 20120127
  Receipt Date: 20120120
  Transmission Date: 20120608
  Serious: Yes (Life-Threatening, Hospitalization, Other)
  Sender: FDA-Public Use
  Company Number: PHHY2012BR005409

PATIENT
  Sex: Male

DRUGS (2)
  1. DIOVAN HCT [Suspect]
     Indication: HYPERTENSION
     Dosage: 1 DF (160/12.5 MG), DAILY
  2. GALVUS MET [Suspect]
     Indication: DIABETES MELLITUS
     Dosage: 1 DF (500/50 MG), DAILY

REACTIONS (8)
  - HYPOPHAGIA [None]
  - PAIN IN EXTREMITY [None]
  - RENAL FAILURE [None]
  - FEELING ABNORMAL [None]
  - MULTI-ORGAN FAILURE [None]
  - HAEMATOCHEZIA [None]
  - INSOMNIA [None]
  - ANAEMIA [None]
